FAERS Safety Report 20573332 (Version 1)
Quarter: 2022Q1

REPORT INFORMATION
  Report Type: Spontaneous
  Country: DE (occurrence: DE)
  Receive Date: 20220309
  Receipt Date: 20220309
  Transmission Date: 20220423
  Serious: Yes (Congenital Anomaly)
  Sender: FDA-Public Use
  Company Number: DE-EMBRYOTOX-202010215

PATIENT
  Sex: Male
  Weight: .98 kg

DRUGS (9)
  1. PROPAFENONE [Suspect]
     Active Substance: PROPAFENONE
     Indication: Atrial fibrillation
     Dosage: 300 MG/D (2X150 MG)
     Route: 064
     Dates: start: 20200821, end: 20210312
  2. INNOHEP [Concomitant]
     Active Substance: TINZAPARIN SODIUM
     Indication: Thrombosis prophylaxis
     Dosage: 10000 (I.E./D)/ THROMBOEMBOLISM PROPHYLAXIS AT PAROXYSMAL ATRIAL FLUTTER AND TACHYCARDIA
     Route: 064
  3. INNOHEP [Concomitant]
     Active Substance: TINZAPARIN SODIUM
     Indication: Tachycardia
  4. ELIQUIS [Concomitant]
     Active Substance: APIXABAN
     Indication: Thrombosis prophylaxis
     Dosage: 10 MG/D (2X5 MG)/ THROMBOEMBOLISM PROPHYLAXIS AT PAROXYSMAL ATRIAL FLUTTER AND TACHYCARDIA
     Route: 064
     Dates: start: 20200727, end: 20200921
  5. ELIQUIS [Concomitant]
     Active Substance: APIXABAN
     Indication: Tachycardia
  6. Enahexal [Concomitant]
     Indication: Atrial fibrillation
     Dosage: 5 MILLIGRAM, QD 5 [MG/D]
     Route: 064
     Dates: start: 20200727, end: 20200921
  7. BETAMETHASONE [Concomitant]
     Active Substance: BETAMETHASONE
     Indication: Maternal therapy to enhance foetal lung maturity
     Dosage: UNK
     Route: 064
     Dates: start: 20210215, end: 20210216
  8. METOPROLOL [Concomitant]
     Active Substance: METOPROLOL
     Indication: Atrial fibrillation
     Dosage: 200 MG/D (2X100)
     Route: 064
  9. JUTABLOC [Concomitant]
     Indication: Atrial fibrillation
     Dosage: 150 MG/D (1-0-0.5-0)
     Route: 064

REACTIONS (8)
  - Respiratory disorder neonatal [Recovered/Resolved]
  - Premature baby [Unknown]
  - Congenital hydronephrosis [Unknown]
  - Congenital umbilical hernia [Unknown]
  - Congenital ureteropelvic junction obstruction [Unknown]
  - Haemangioma [Unknown]
  - Atrial septal defect [Unknown]
  - Foetal exposure during pregnancy [Recovered/Resolved]

NARRATIVE: CASE EVENT DATE: 20210301
